FAERS Safety Report 7536356-0 (Version None)
Quarter: 2011Q2

REPORT INFORMATION
  Report Type: 
  Country: None (occurrence: None)
  Receive Date: 20110602
  Receipt Date: 20110516
  Transmission Date: 20111010
  Serious: Yes (Congenital Anomaly, Other)
  Sender: FDA-Public Use
  Company Number: 7059756

PATIENT

DRUGS (1)
  1. THYROXINE (LEVOTHYROXINE) (LEVOTHYROXINE SODIUM) [Suspect]
     Indication: BLOOD THYROID STIMULATING HORMONE INCREASED
     Dosage: 50 MCG, TRANSPLACENTAL
     Route: 064

REACTIONS (3)
  - MATERNAL DRUGS AFFECTING FOETUS [None]
  - CONGENITAL HYPOTHYROIDISM [None]
  - GOITRE CONGENITAL [None]
